FAERS Safety Report 18294420 (Version 1)
Quarter: 2020Q3

REPORT INFORMATION
  Report Type: Spontaneous
  Country: US (occurrence: US)
  Receive Date: 20200922
  Receipt Date: 20200922
  Transmission Date: 20201103
  Serious: Yes (Hospitalization)
  Sender: FDA-Public Use
  Company Number: None

PATIENT
  Sex: Male

DRUGS (19)
  1. ENBREL [Suspect]
     Active Substance: ETANERCEPT
     Indication: PRODUCT USED FOR UNKNOWN INDICATION
     Route: 058
     Dates: start: 20190220
  2. DILTIAZEM ER [Concomitant]
     Active Substance: DILTIAZEM
  3. OXYCODONE AND ACETAMINOPHEN [Concomitant]
     Active Substance: ACETAMINOPHEN\OXYCODONE HYDROCHLORIDE
  4. TAMSULOSIN [Concomitant]
     Active Substance: TAMSULOSIN
  5. HYDROXYZ HCL [Concomitant]
     Active Substance: HYDROXYZINE HYDROCHLORIDE
  6. PAROXETINE. [Concomitant]
     Active Substance: PAROXETINE
  7. XTAMPZA ER [Concomitant]
     Active Substance: OXYCODONE
  8. BELSOMRA [Concomitant]
     Active Substance: SUVOREXANT
  9. CLINDAMYCIN. [Concomitant]
     Active Substance: CLINDAMYCIN
  10. FOLIC ACID. [Concomitant]
     Active Substance: FOLIC ACID
  11. PROAIR HFA [Concomitant]
     Active Substance: ALBUTEROL SULFATE
  12. TIZANIDINE. [Concomitant]
     Active Substance: TIZANIDINE
  13. ATORVASTATIN [Concomitant]
     Active Substance: ATORVASTATIN
  14. TAMSULOSIN [Concomitant]
     Active Substance: TAMSULOSIN
  15. NEBUMETONE [Concomitant]
  16. MONTELUKAST [Concomitant]
     Active Substance: MONTELUKAST SODIUM
  17. HYDROCO/APAP [Concomitant]
     Active Substance: ACETAMINOPHEN\HYDROCODONE
  18. OLMESA MEDOX [Concomitant]
  19. XTAMPZA ER [Concomitant]
     Active Substance: OXYCODONE

REACTIONS (2)
  - Therapy interrupted [None]
  - Gastrectomy [None]
